FAERS Safety Report 6739969-9 (Version None)
Quarter: 2010Q2

REPORT INFORMATION
  Report Type: 
  Country: None (occurrence: None)
  Receive Date: 20100525
  Receipt Date: 20100512
  Transmission Date: 20101027
  Serious: Yes (Hospitalization)
  Sender: FDA-Public Use
  Company Number: US-ELI_LILLY_AND_COMPANY-US201005004203

PATIENT
  Sex: Male

DRUGS (4)
  1. CIALIS [Suspect]
     Dosage: 5 MG, DAILY (1/D)
     Dates: start: 20100331
  2. VYTORIN [Concomitant]
  3. CO-Q10 [Concomitant]
     Dates: end: 20100428
  4. STATIN /00084401/ [Concomitant]

REACTIONS (4)
  - BACK PAIN [None]
  - MYALGIA [None]
  - OEDEMA PERIPHERAL [None]
  - THROMBOSIS [None]
